FAERS Safety Report 24529292 (Version 1)
Quarter: 2024Q4

REPORT INFORMATION
  Report Type: Report from Study
  Country: CA (occurrence: CA)
  Receive Date: 20241021
  Receipt Date: 20241021
  Transmission Date: 20250115
  Serious: Yes (Other)
  Sender: SAMSUNG BIOEPIS
  Company Number: CA-SAMSUNG BIOEPIS-SB-2024-31447

PATIENT
  Age: 62 Year
  Sex: Male

DRUGS (3)
  1. RENFLEXIS [Suspect]
     Active Substance: INFLIXIMAB-ABDA
     Indication: Pneumonitis
     Dosage: WEEK 0, 2, 6;
     Route: 042
     Dates: start: 20240529, end: 20240710
  2. RENFLEXIS [Suspect]
     Active Substance: INFLIXIMAB-ABDA
     Dates: start: 20240912
  3. RENFLEXIS [Suspect]
     Active Substance: INFLIXIMAB-ABDA
     Dosage: WEEK 0, 2, 6 REINDUCTION;
     Route: 042
     Dates: start: 20240926

REACTIONS (2)
  - Pneumonia [Unknown]
  - Off label use [Unknown]
